FAERS Safety Report 5317495-1 (Version None)
Quarter: 2007Q2

REPORT INFORMATION
  Report Type: 
  Country: None (occurrence: None)
  Receive Date: 20070507
  Receipt Date: 20070424
  Transmission Date: 20071010
  Serious: Yes (Hospitalization, Other)
  Sender: FDA-Public Use
  Company Number: PHEH2007US05080

PATIENT
  Age: 52 Year
  Sex: Female
  Weight: 65.306 kg

DRUGS (3)
  1. WARFARIN SODIUM [Concomitant]
     Dosage: 5 MG, UNK
  2. EXJADE [Suspect]
     Indication: IRON OVERLOAD
     Dosage: 1500 MG, QD
     Route: 048
     Dates: start: 20060301, end: 20060901
  3. EXJADE [Suspect]
     Dosage: 1500 MG, QD
     Dates: start: 20061101, end: 20070408

REACTIONS (8)
  - ALANINE AMINOTRANSFERASE INCREASED [None]
  - ASPARTATE AMINOTRANSFERASE INCREASED [None]
  - BILIARY DILATATION [None]
  - BLOOD BILIRUBIN INCREASED [None]
  - INTERNATIONAL NORMALISED RATIO INCREASED [None]
  - PORTAL ANASTOMOSIS [None]
  - RENAL CYST [None]
  - SPLENOMEGALY [None]
